FAERS Safety Report 15189590 (Version 2)
Quarter: 2018Q3

REPORT INFORMATION
  Report Type: Spontaneous
  Country: US (occurrence: US)
  Receive Date: 20180724
  Receipt Date: 20180924
  Transmission Date: 20181010
  Serious: Yes (Hospitalization)
  Sender: FDA-Public Use
  Company Number: US-VERTEX PHARMACEUTICALS-2018-004960

PATIENT
  Age: 32 Year
  Sex: Male

DRUGS (8)
  1. SYMDEKO [Suspect]
     Active Substance: IVACAFTOR\TEZACAFTOR
     Dosage: 1 TABLET TWICE PER WEEK
     Route: 048
     Dates: start: 2018, end: 2018
  2. RANITIDINE. [Concomitant]
     Active Substance: RANITIDINE
  3. CAYSTON [Concomitant]
     Active Substance: AZTREONAM
  4. URSODIOL. [Concomitant]
     Active Substance: URSODIOL
  5. SYMDEKO [Suspect]
     Active Substance: IVACAFTOR\TEZACAFTOR
     Dosage: 100MG TEZACAFTOR/150MG IVACAFTOR AM ; 150MG IVACAFTOR PM
     Route: 048
     Dates: start: 2018
  6. SYMDEKO [Suspect]
     Active Substance: IVACAFTOR\TEZACAFTOR
     Indication: CYSTIC FIBROSIS
     Dosage: 100MG TEZACAFTOR/150MG IVACAFTOR AM ; 150MG IVACAFTOR PM
     Route: 048
     Dates: start: 20180301, end: 2018
  7. PULMOZYME [Concomitant]
     Active Substance: DORNASE ALFA
  8. TOBRAMYCIN. [Concomitant]
     Active Substance: TOBRAMYCIN

REACTIONS (1)
  - Pulmonary embolism [Recovering/Resolving]

NARRATIVE: CASE EVENT DATE: 20180702
